FAERS Safety Report 7893751-8 (Version None)
Quarter: 2011Q4

REPORT INFORMATION
  Report Type: 
  Country: None (occurrence: None)
  Receive Date: 20111104
  Receipt Date: 20111104
  Transmission Date: 20120403
  Serious: Yes (Hospitalization)
  Sender: FDA-Public Use
  Company Number: PHHO2011IT14043

PATIENT
  Sex: Female
  Weight: 58 kg

DRUGS (5)
  1. NO TREATMENT RECEIVED [Suspect]
     Indication: BREAST CANCER
     Dosage: NO TREATMENT
  2. FLUOROURACIL [Suspect]
     Indication: BREAST CANCER
     Dosage: 656 MG, UNK
     Route: 042
     Dates: start: 20110628
  3. EPIRUBICIN [Suspect]
     Indication: BREAST CANCER
     Dosage: 131.20 MG, UNK
     Route: 042
     Dates: start: 20110628
  4. CYCLOPHOSPHAMIDE [Suspect]
     Indication: BREAST CANCER
     Dosage: 656 MG, UNK
     Route: 042
     Dates: start: 20110628
  5. AUGMENTIN '125' [Concomitant]
     Indication: PYREXIA
     Dosage: 1 G, UNK
     Route: 048
     Dates: start: 20110810, end: 20110816

REACTIONS (2)
  - PNEUMONITIS [None]
  - FEBRILE NEUTROPENIA [None]
